FAERS Safety Report 9439332 (Version 5)
Quarter: 2014Q2

REPORT INFORMATION
  Report Type: Report from Study
  Country: IT (occurrence: IT)
  Receive Date: 20130804
  Receipt Date: 20140612
  Transmission Date: 20141212
  Serious: Yes (Hospitalization, Other)
  Sender: FDA-Public Use
  Company Number: PHHY2013IT081074

PATIENT
  Age: 40 Year
  Sex: Female

DRUGS (2)
  1. GILENYA [Suspect]
     Indication: MULTIPLE SCLEROSIS
     Dosage: 0.5 MG, QD
     Route: 048
     Dates: start: 20130115
  2. RIVOTRIL [Concomitant]
     Dosage: 0.4 MG, QD

REACTIONS (3)
  - Trigeminal neuralgia [Recovered/Resolved]
  - Condition aggravated [Recovered/Resolved]
  - Multiple sclerosis relapse [Recovered/Resolved]
